FAERS Safety Report 4485112-9 (Version None)
Quarter: 2004Q4

REPORT INFORMATION
  Report Type: 
  Country: None (occurrence: None)
  Receive Date: 20041026
  Receipt Date: 20031015
  Transmission Date: 20050328
  Serious: No
  Sender: FDA-Public Use
  Company Number: US-BRISTOL-MYERS SQUIBB COMPANY-12412110

PATIENT
  Age: 81 Year
  Sex: Female
  Weight: 60 kg

DRUGS (9)
  1. GLUCOPHAGE XR [Suspect]
     Indication: DIABETES MELLITUS
     Route: 048
     Dates: start: 20031008, end: 20031014
  2. COUMADIN [Concomitant]
  3. LANOXIN [Concomitant]
  4. LASIX [Concomitant]
  5. AVANDIA [Concomitant]
  6. ISORDIL [Concomitant]
  7. POTASSIUM CHLORIDE [Concomitant]
  8. ADALAT [Concomitant]
  9. IRON [Concomitant]

REACTIONS (2)
  - ABDOMINAL DISCOMFORT [None]
  - CONSTIPATION [None]
